FAERS Safety Report 11875245 (Version 1)
Quarter: 2015Q4

REPORT INFORMATION
  Report Type: Spontaneous
  Country: US (occurrence: None)
  Receive Date: 20151228
  Receipt Date: 20151228
  Transmission Date: 20160305
  Serious: Yes (Other)
  Sender: FDA-Public Use
  Company Number: None

PATIENT
  Age: 65 Year
  Sex: Male

DRUGS (1)
  1. XELODA [Suspect]
     Active Substance: CAPECITABINE

REACTIONS (4)
  - Faeces hard [None]
  - Faeces discoloured [None]
  - Diarrhoea [None]
  - Rash [None]

NARRATIVE: CASE EVENT DATE: 20151222
